FAERS Safety Report 4649562-X (Version None)
Quarter: 2005Q2

REPORT INFORMATION
  Report Type: 
  Country: None (occurrence: None)
  Receive Date: 20050427
  Receipt Date: 20050414
  Transmission Date: 20051028
  Serious: Yes (Life-Threatening, Hospitalization, Disabling, Other)
  Sender: FDA-Public Use
  Company Number: 2005042730

PATIENT
  Age: 42 Year
  Sex: Male

DRUGS (5)
  1. NEURONTIN [Suspect]
     Indication: BIPOLAR DISORDER
     Dosage: 900 MG (300 MG, 3 IN 1 D)
     Dates: start: 20020101
  2. NEURONTIN [Suspect]
     Indication: DEPRESSION
     Dosage: 900 MG (300 MG, 3 IN 1 D)
     Dates: start: 20020101
  3. PAROXETINE HCL [Concomitant]
  4. CHLORPROMAZINE [Concomitant]
  5. ZOLPIDEM TARTRATE [Concomitant]

REACTIONS (27)
  - AGITATION [None]
  - ANOREXIA [None]
  - ATELECTASIS [None]
  - BLINDNESS [None]
  - CEREBRAL HAEMORRHAGE [None]
  - COGNITIVE DISORDER [None]
  - CONTUSION [None]
  - DELIRIUM [None]
  - DIABETES INSIPIDUS [None]
  - DYSPEPSIA [None]
  - DYSPHAGIA [None]
  - EYEBALL RUPTURE [None]
  - FACIAL BONES FRACTURE [None]
  - FRACTURE [None]
  - GUN SHOT WOUND [None]
  - HYPOCALCAEMIA [None]
  - HYPOMAGNESAEMIA [None]
  - INTENTIONAL SELF-INJURY [None]
  - LOSS OF CONSCIOUSNESS [None]
  - PLEURAL EFFUSION [None]
  - PNEUMOCEPHALUS [None]
  - PNEUMONIA BACTERIAL [None]
  - PSEUDOMONAS INFECTION [None]
  - RESPIRATORY FAILURE [None]
  - SINUS DISORDER [None]
  - SOFT TISSUE INJURY [None]
  - SUICIDE ATTEMPT [None]
